FAERS Safety Report 25247806 (Version 1)
Quarter: 2025Q2

REPORT INFORMATION
  Report Type: Spontaneous
  Country: FR (occurrence: FR)
  Receive Date: 20250428
  Receipt Date: 20250428
  Transmission Date: 20250716
  Serious: Yes (Other)
  Sender: JOHNSON AND JOHNSON
  Company Number: None

PATIENT
  Age: 4 Month
  Sex: Male
  Weight: 5.9 kg

DRUGS (4)
  1. XARELTO [Suspect]
     Active Substance: RIVAROXABAN
     Indication: Coronary artery aneurysm
     Dosage: 1.6 ML, Q8HR
     Route: 048
     Dates: start: 20241230, end: 20250216
  2. XARELTO [Suspect]
     Active Substance: RIVAROXABAN
     Dosage: 1.8 ML, Q8HR
     Route: 048
     Dates: start: 20250217
  3. ESOMEPRAZOLE [Suspect]
     Active Substance: ESOMEPRAZOLE
     Indication: Prophylaxis against gastrointestinal ulcer
     Dosage: 10 MG, QD
     Route: 048
     Dates: start: 20241230
  4. ASPIRIN [Suspect]
     Active Substance: ASPIRIN
     Indication: Kawasaki^s disease
     Dosage: 50 MG, QD
     Route: 048
     Dates: start: 20241224

REACTIONS (1)
  - Hepatic cytolysis [Not Recovered/Not Resolved]

NARRATIVE: CASE EVENT DATE: 20250114
